FAERS Safety Report 9580098 (Version 1)
Quarter: 2013Q3

REPORT INFORMATION
  Report Type: Spontaneous
  Country: US (occurrence: None)
  Receive Date: 20130916
  Receipt Date: 20130916
  Transmission Date: 20140515
  Serious: Yes (Other)
  Sender: FDA-Public Use
  Company Number: JPI-P-031261

PATIENT
  Sex: 0

DRUGS (2)
  1. XYREM [Suspect]
     Indication: NARCOLEPSY
     Route: 048
  2. XYREM [Suspect]
     Indication: NARCOLEPSY
     Route: 048

REACTIONS (1)
  - Suicidal ideation [None]
